FAERS Safety Report 25265818 (Version 1)
Quarter: 2025Q2

REPORT INFORMATION
  Report Type: Spontaneous
  Country: JP (occurrence: JP)
  Receive Date: 20250503
  Receipt Date: 20250503
  Transmission Date: 20250716
  Serious: Yes (Life-Threatening, Hospitalization)
  Sender: ACCORD
  Company Number: JP-MLMSERVICE-20250416-PI477804-00140-1

PATIENT
  Age: 14 Month
  Sex: Female

DRUGS (3)
  1. ETOPOSIDE [Suspect]
     Active Substance: ETOPOSIDE
     Indication: Acute monocytic leukaemia
  2. CYTARABINE [Suspect]
     Active Substance: CYTARABINE
     Indication: Acute monocytic leukaemia
  3. PREDNISOLONE [Concomitant]
     Active Substance: PREDNISOLONE
     Indication: Prophylaxis

REACTIONS (2)
  - Lung disorder [Recovered/Resolved]
  - Systemic inflammatory response syndrome [Recovered/Resolved]
